FAERS Safety Report 14827120 (Version 1)
Quarter: 2018Q2

REPORT INFORMATION
  Report Type: Spontaneous
  Country: US (occurrence: US)
  Receive Date: 20180430
  Receipt Date: 20180430
  Transmission Date: 20180711
  Serious: No
  Sender: FDA-Public Use
  Company Number: US-ABBVIE-18P-163-2286451-00

PATIENT
  Sex: Male

DRUGS (1)
  1. CREON [Suspect]
     Active Substance: PANCRELIPASE AMYLASE\PANCRELIPASE LIPASE\PANCRELIPASE PROTEASE
     Indication: PANCREATIC FAILURE
     Route: 048

REACTIONS (6)
  - Weight decreased [Unknown]
  - Constipation [Unknown]
  - Rheumatoid arthritis [Unknown]
  - Enzyme abnormality [Unknown]
  - Product use issue [Unknown]
  - Bowel movement irregularity [Unknown]
